FAERS Safety Report 7997398-4 (Version None)
Quarter: 2011Q4

REPORT INFORMATION
  Report Type: 
  Country: None (occurrence: None)
  Receive Date: 20111221
  Receipt Date: 20111216
  Transmission Date: 20120403
  Serious: Yes (Death)
  Sender: FDA-Public Use
  Company Number: JP-EISAI INC-E7389-01597-CLI-JP

PATIENT
  Sex: Female
  Weight: 62 kg

DRUGS (20)
  1. LENDORMIN [Concomitant]
     Route: 048
  2. GOREISAN [Concomitant]
     Route: 048
  3. OXINORM [Concomitant]
     Route: 048
  4. LASIX [Concomitant]
     Route: 048
  5. RABEPRAZOLE SODIUM [Concomitant]
     Route: 048
  6. LEVOFLOXACIN [Concomitant]
     Route: 048
  7. VOLTAREN [Concomitant]
  8. HALAVEN [Suspect]
     Indication: METASTASES TO LYMPH NODES
  9. KAKKON-TO [Concomitant]
     Route: 048
  10. HALAVEN [Suspect]
     Indication: METASTASES TO GALLBLADDER
  11. FAMOTIDINE [Concomitant]
     Route: 048
  12. LIVACT [Concomitant]
     Route: 048
  13. CELECOXIB [Concomitant]
     Route: 048
  14. MOTILIUM [Concomitant]
     Route: 048
  15. MERISLON [Concomitant]
     Route: 048
  16. HALAVEN [Suspect]
     Indication: METASTASES TO PERITONEUM
  17. HALAVEN [Suspect]
     Indication: BREAST CANCER RECURRENT
     Route: 041
     Dates: start: 20110803, end: 20110922
  18. HALAVEN [Suspect]
     Indication: METASTASES TO LIVER
  19. FENTOS [Concomitant]
  20. PRIMPERAN TAB [Concomitant]
     Route: 048

REACTIONS (1)
  - PULMONARY HAEMORRHAGE [None]
